FAERS Safety Report 5277072-8 (Version None)
Quarter: 2007Q1

REPORT INFORMATION
  Report Type: 
  Country: None (occurrence: None)
  Receive Date: 20070327
  Receipt Date: 20070313
  Transmission Date: 20070707
  Serious: Yes (Other)
  Sender: FDA-Public Use
  Company Number: PHBS2007VE04636

PATIENT
  Age: 27 Year
  Sex: Female

DRUGS (3)
  1. METHERGINE [Suspect]
     Dosage: 0.2 MG/ML, TID
     Route: 065
     Dates: start: 20070308, end: 20070311
  2. METHERGINE [Suspect]
     Dosage: UNKNOWN
     Route: 065
     Dates: start: 20070313, end: 20070313
  3. FOLIC ACID [Concomitant]
     Dosage: UNKNOWN
     Route: 065
     Dates: start: 20070308

REACTIONS (2)
  - PARAESTHESIA [None]
  - SENSATION OF HEAVINESS [None]
